FAERS Safety Report 8981948 (Version 1)
Quarter: 2012Q4

REPORT INFORMATION
  Report Type: 
  Country: US (occurrence: US)
  Receive Date: 20121212
  Receipt Date: 20121212
  Transmission Date: 20130627
  Serious: No
  Sender: FDA-Public Use
  Company Number: US-ASTELLAS-1143770

PATIENT
  Sex: Female

DRUGS (2)
  1. TARCEVA [Suspect]
     Indication: MALIGNANT RESPIRATORY TRACT NEOPLASM
     Route: 065
  2. TARCEVA [Suspect]
     Indication: BLADDER CANCER

REACTIONS (3)
  - Visual impairment [Unknown]
  - Dry skin [Unknown]
  - Diarrhoea [Unknown]
